FAERS Safety Report 8144213-4 (Version None)
Quarter: 2012Q1

REPORT INFORMATION
  Report Type: 
  Country: None (occurrence: None)
  Receive Date: 20120217
  Receipt Date: 20120214
  Transmission Date: 20120608
  Serious: Yes (Hospitalization, Other)
  Sender: FDA-Public Use
  Company Number: US-PFIZER INC-2007092144

PATIENT
  Sex: Male
  Weight: 113 kg

DRUGS (21)
  1. ASCORBIC ACID [Concomitant]
     Dosage: 500 MG, 2X/DAY
  2. XYZAL [Concomitant]
     Indication: HYPERSENSITIVITY
     Dosage: 5 MG, 1X/DAY
     Route: 048
  3. NASONEX [Concomitant]
     Dosage: UNK
     Route: 045
  4. GLUCOPHAGE [Concomitant]
     Dosage: 1000 MG, 1X/DAY
     Route: 048
  5. ATIVAN [Suspect]
     Dosage: UNK
  6. HYDROCODONE [Concomitant]
     Dosage: 500 MG, 2X/DAY
  7. ACTOS [Concomitant]
     Indication: DIABETES MELLITUS
     Dosage: 25 MG, 1X/DAY
     Route: 048
  8. ACETYLSALICYLIC ACID [Concomitant]
     Dosage: 325 MG, 2X/DAY
     Route: 048
  9. TRICOR [Concomitant]
     Indication: BLOOD CHOLESTEROL ABNORMAL
     Dosage: 145 MG, 1X/DAY
  10. MOBIC [Concomitant]
     Dosage: 7.5 MG, 2X/DAY
     Route: 048
  11. COREG [Concomitant]
     Dosage: 3.125 MG, 2X/DAY
     Route: 048
  12. CARDIZEM [Concomitant]
     Indication: HYPERTENSION
     Dosage: 360 MG, 1X/DAY
     Route: 048
  13. ZYRTEC [Concomitant]
     Dosage: UNK
  14. TEGRETOL [Concomitant]
     Indication: CONVULSION
     Dosage: UNK
     Route: 048
  15. ZOLOFT [Concomitant]
     Dosage: 25 MG, 1X/DAY
     Route: 048
  16. DILANTIN [Suspect]
     Indication: CONVULSION
  17. PHENYTOIN [Suspect]
     Indication: CONVULSION
  18. XANAX [Concomitant]
     Indication: ANXIETY
     Dosage: 0.5 MG, 3X/DAY
  19. DILANTIN [Suspect]
     Indication: EPILEPSY
     Dosage: 100 MG, 2 PILLS IN THE MORNING, EVENING AND NIGHT
     Dates: start: 19980101
  20. PREVACID [Concomitant]
     Indication: DYSPEPSIA
     Dosage: 30 MG, 1X/DAY
     Route: 048
  21. PREVACID [Concomitant]
     Route: 048

REACTIONS (12)
  - DIABETES MELLITUS [None]
  - SWOLLEN TONGUE [None]
  - MOVEMENT DISORDER [None]
  - NERVOUSNESS [None]
  - IMPATIENCE [None]
  - MOUTH INJURY [None]
  - PARANOIA [None]
  - CONVULSION [None]
  - ANTICONVULSANT DRUG LEVEL INCREASED [None]
  - ADVERSE DRUG REACTION [None]
  - MUSCLE TWITCHING [None]
  - MUSCULAR WEAKNESS [None]
